FAERS Safety Report 9549334 (Version 3)
Quarter: 2014Q2

REPORT INFORMATION
  Report Type: Spontaneous
  Country: IT (occurrence: IT)
  Receive Date: 20130924
  Receipt Date: 20140404
  Transmission Date: 20141212
  Serious: Yes (Other)
  Sender: FDA-Public Use
  Company Number: IT-PFIZER INC-2013272576

PATIENT
  Age: 81 Year
  Sex: Female

DRUGS (3)
  1. TENORMIN [Suspect]
     Indication: PALPITATIONS
     Dosage: 0.5 DF, UNK
     Route: 048
     Dates: start: 201202
  2. LEXOTAN [Concomitant]
     Dosage: 2.5 MG/ML, UNK
     Route: 048
  3. EUTIROX [Concomitant]
     Dosage: UNK
     Route: 065

REACTIONS (5)
  - Dyspnoea [Recovered/Resolved]
  - Hypotension [Recovered/Resolved]
  - Sinus bradycardia [Recovered/Resolved]
  - Drug abuse [Unknown]
  - Off label use [Unknown]
